FAERS Safety Report 18559344 (Version 3)
Quarter: 2021Q1

REPORT INFORMATION
  Report Type: Spontaneous
  Country: JP (occurrence: JP)
  Receive Date: 20201130
  Receipt Date: 20210216
  Transmission Date: 20210419
  Serious: Yes (Hospitalization, Other)
  Sender: FDA-Public Use
  Company Number: JP-009507513-2011JPN003544J

PATIENT
  Age: 63 Year
  Sex: Female
  Weight: 65 kg

DRUGS (4)
  1. CARBOPLATIN. [Concomitant]
     Active Substance: CARBOPLATIN
     Indication: LUNG ADENOCARCINOMA STAGE I
     Dosage: 440 MILLIGRAM, Q3W
     Route: 041
     Dates: start: 20200416, end: 20200625
  2. KEYTRUDA [Suspect]
     Active Substance: PEMBROLIZUMAB
     Indication: LUNG ADENOCARCINOMA STAGE I
     Dosage: 200 MILLIGRAM, Q3W
     Route: 041
     Dates: start: 20200416, end: 20200528
  3. PEMETREXED DISODIUM [Concomitant]
     Active Substance: PEMETREXED DISODIUM
     Dosage: 830 MILLIGRAM, Q3W
     Route: 041
     Dates: start: 20200730, end: 20200730
  4. PEMETREXED DISODIUM [Concomitant]
     Active Substance: PEMETREXED DISODIUM
     Indication: LUNG ADENOCARCINOMA STAGE I
     Dosage: 830 MILLIGRAM, Q3W
     Route: 041
     Dates: start: 20200416, end: 20200625

REACTIONS (2)
  - Immune-mediated myositis [Recovering/Resolving]
  - Cytopenia [Recovered/Resolved]

NARRATIVE: CASE EVENT DATE: 20200618
